FAERS Safety Report 4333601-X (Version None)
Quarter: 2004Q2

REPORT INFORMATION
  Report Type: 
  Country: None (occurrence: None)
  Receive Date: 20040401
  Receipt Date: 20040325
  Transmission Date: 20050107
  Serious: Yes (Hospitalization)
  Sender: FDA-Public Use
  Company Number: TPA2001A00957

PATIENT
  Age: 48 Year
  Sex: Male
  Weight: 113.3993 kg

DRUGS (6)
  1. ACTOS [Suspect]
     Indication: DIABETES MELLITUS NON-INSULIN-DEPENDENT
     Dosage: 15 MG, 1 IN 1 D, PER ORAL
     Route: 048
     Dates: start: 20010226, end: 20010801
  2. DIOVAN [Concomitant]
  3. HYDROCHLOROTHIAZIDE [Concomitant]
  4. INSULIN 75/25 (INSULIN /N/A/) [Concomitant]
  5. VALIUM [Concomitant]
  6. SYNTHROID [Concomitant]

REACTIONS (3)
  - ALANINE AMINOTRANSFERASE INCREASED [None]
  - ASPARTATE AMINOTRANSFERASE INCREASED [None]
  - CHOLECYSTITIS [None]
